FAERS Safety Report 6869463-6 (Version None)
Quarter: 2010Q3

REPORT INFORMATION
  Report Type: 
  Country: None (occurrence: None)
  Receive Date: 20100722
  Receipt Date: 20080908
  Transmission Date: 20110219
  Serious: No
  Sender: FDA-Public Use
  Company Number: US-PFIZER INC-2008064355

PATIENT
  Sex: Female
  Weight: 61.23 kg

DRUGS (3)
  1. CHANTIX [Suspect]
     Indication: SMOKING CESSATION THERAPY
     Dates: start: 20080410, end: 20080701
  2. ZOLOFT [Suspect]
     Indication: PREMENSTRUAL SYNDROME
  3. DEPAKOTE [Concomitant]

REACTIONS (7)
  - ABDOMINAL DISCOMFORT [None]
  - ABDOMINAL PAIN [None]
  - ANORGASMIA [None]
  - FLATULENCE [None]
  - LOSS OF LIBIDO [None]
  - NAUSEA [None]
  - SEXUAL DYSFUNCTION [None]
